FAERS Safety Report 4389889-2 (Version None)
Quarter: 2004Q2

REPORT INFORMATION
  Report Type: 
  Country: None (occurrence: None)
  Receive Date: 20040630
  Receipt Date: 20040617
  Transmission Date: 20050107
  Serious: Yes (Other)
  Sender: FDA-Public Use
  Company Number: 2004031197

PATIENT
  Age: 75 Year
  Sex: Male
  Weight: 75 kg

DRUGS (1)
  1. CHLORPROPAMIDE [Suspect]
     Indication: DIABETES MELLITUS
     Dosage: 250 MG (1 IN 1 D), ORAL
     Route: 048
     Dates: start: 19960101

REACTIONS (2)
  - AMNESIA [None]
  - CEREBROVASCULAR ACCIDENT [None]
